FAERS Safety Report 8532905-4 (Version None)
Quarter: 2012Q3

REPORT INFORMATION
  Report Type: 
  Country: None (occurrence: None)
  Receive Date: 20120711
  Receipt Date: 20120626
  Transmission Date: 20120928
  Serious: Yes (Death, Other)
  Sender: FDA-Public Use
  Company Number: FK201201827

PATIENT
  Age: 72 Year
  Sex: Male

DRUGS (3)
  1. CISPLATIN [Suspect]
     Indication: PERICARDIAL MESOTHELIOMA MALIGNANT ADVANCED
  2. PEMETREXED [Suspect]
     Indication: PERICARDIAL MESOTHELIOMA MALIGNANT ADVANCED
  3. OMEPRAZOLE [Concomitant]

REACTIONS (5)
  - RENAL FAILURE ACUTE [None]
  - ACUTE RESPIRATORY DISTRESS SYNDROME [None]
  - HEPATIC NECROSIS [None]
  - METASTASES TO LIVER [None]
  - METASTASES TO LYMPH NODES [None]
